FAERS Safety Report 22399154 (Version 1)
Quarter: 2023Q2

REPORT INFORMATION
  Report Type: Other
  Country: DE (occurrence: DE)
  Receive Date: 20230602
  Receipt Date: 20230602
  Transmission Date: 20230721
  Serious: Yes (Other)
  Sender: FDA-Public Use
  Company Number: DE-MYLANLABS-2023M1039793

PATIENT
  Age: 17 Year

DRUGS (8)
  1. RITUXIMAB [Suspect]
     Active Substance: RITUXIMAB
     Indication: Immunomodulatory therapy
     Dosage: 375 MILLIGRAM/SQ. METER, 2X (RECEIVED TWICE)
     Route: 041
  2. ABATACEPT [Suspect]
     Active Substance: ABATACEPT
     Indication: Immunomodulatory therapy
     Dosage: 10 MILLIGRAM/KILOGRAM, BIWEEKLY
     Route: 065
  3. THIOTEPA [Suspect]
     Active Substance: THIOTEPA
     Indication: Bone marrow conditioning regimen
     Dosage: 10 MILLIGRAM/SQ. METER
     Route: 065
  4. ATG-FRESENIUS [Suspect]
     Active Substance: LAPINE T-LYMPHOCYTE IMMUNE GLOBULIN
     Indication: Immunoglobulin therapy
     Dosage: UNK
     Route: 065
  5. FLUDARABINE [Suspect]
     Active Substance: FLUDARABINE PHOSPHATE
     Indication: Bone marrow conditioning regimen
     Dosage: 120 MILLIGRAM/SQ. METER
     Route: 065
  6. CYCLOSPORINE [Suspect]
     Active Substance: CYCLOSPORINE
     Indication: Prophylaxis against graft versus host disease
     Dosage: UNK
     Route: 065
  7. TREOSULFAN [Suspect]
     Active Substance: TREOSULFAN
     Indication: Bone marrow conditioning regimen
     Dosage: 42 GRAM PER SQUARE METRE, 42 G/M2
     Route: 065
  8. METHOTREXATE [Suspect]
     Active Substance: METHOTREXATE
     Indication: Prophylaxis against graft versus host disease
     Dosage: UNK
     Route: 065

REACTIONS (7)
  - Human herpesvirus 6 infection [Recovered/Resolved]
  - Pharyngeal ulceration [Recovered/Resolved]
  - Parvovirus B19 infection [Recovered/Resolved]
  - Cytomegalovirus infection [Recovered/Resolved]
  - Candida infection [Recovered/Resolved]
  - Gastritis [Unknown]
  - Off label use [Unknown]
